FAERS Safety Report 8045096-3 (Version None)
Quarter: 2012Q1

REPORT INFORMATION
  Report Type: 
  Country: None (occurrence: None)
  Receive Date: 20120113
  Receipt Date: 20120111
  Transmission Date: 20120608
  Serious: Yes (Other)
  Sender: FDA-Public Use
  Company Number: PHEH2012US001069

PATIENT
  Sex: Male

DRUGS (24)
  1. PREDNISONE [Concomitant]
  2. GLIPIZIDE [Concomitant]
  3. LASIX [Concomitant]
     Dosage: UNK
  4. POTASSIUM CHLORIDE [Concomitant]
  5. PRILOSEC [Concomitant]
  6. PULMICORT [Concomitant]
  7. LOVAZA [Concomitant]
  8. TOBI [Suspect]
     Dosage: 300 MG, BID 28 DAYS AND OFF 28 DAYS
  9. COREG [Concomitant]
  10. CELEXA [Concomitant]
  11. DIOVAN [Concomitant]
     Dosage: UNK
  12. PARADEX [Concomitant]
  13. REGLAN [Concomitant]
  14. TRAZODONE HCL [Concomitant]
  15. CALCIUM [Concomitant]
  16. FLONASE [Concomitant]
  17. METFORMIN HCL [Concomitant]
  18. SPIRONOLACTONE [Concomitant]
  19. METOLAZONE [Concomitant]
  20. MUCINEX [Concomitant]
  21. NITROGLYCERIN [Concomitant]
  22. SPIRIVA [Concomitant]
  23. ALBUTEROL [Concomitant]
     Dosage: UNK
  24. LIPITOR [Concomitant]
     Dosage: UNK

REACTIONS (5)
  - PSEUDOMONAS INFECTION [None]
  - DEAFNESS UNILATERAL [None]
  - DYSPNOEA [None]
  - SPUTUM DISCOLOURED [None]
  - COUGH [None]
